FAERS Safety Report 18319160 (Version 1)
Quarter: 2020Q3

REPORT INFORMATION
  Report Type: Spontaneous
  Country: US (occurrence: US)
  Receive Date: 20200928
  Receipt Date: 20200928
  Transmission Date: 20201103
  Serious: No
  Sender: FDA-Public Use
  Company Number: None

PATIENT
  Age: 68 Year
  Sex: Male
  Weight: 115.2 kg

DRUGS (1)
  1. RECOTHROM [Suspect]
     Active Substance: THROMBIN ALFA
     Indication: HEPARIN RESISTANCE
     Route: 042
     Dates: start: 20200615, end: 20200615

REACTIONS (1)
  - Wrong product administered [None]

NARRATIVE: CASE EVENT DATE: 20200615
